FAERS Safety Report 15191023 (Version 1)
Quarter: 2018Q3

REPORT INFORMATION
  Report Type: Spontaneous
  Country: US (occurrence: US)
  Receive Date: 20180625
  Receipt Date: 20180625
  Transmission Date: 20181010
  Serious: Yes (Disabling, Other)
  Sender: FDA-Public Use
  Company Number: None

PATIENT
  Age: 65 Year
  Sex: Female
  Weight: .45 kg

DRUGS (3)
  1. DIGESTIVE SUPPLEMENTS [Concomitant]
  2. FLUTICASONE PROPIONATE NASAL SPRAY USP 50 MCG PER SPRAY 60505?0829?1 [Suspect]
     Active Substance: FLUTICASONE PROPIONATE
     Indication: SINUS CONGESTION
     Dosage: OTHER STRENGTH:120 METERED SPRAYS;QUANTITY:1 SPRAY(S);?
     Route: 055
     Dates: start: 20151013, end: 20180205
  3. FIBER [Concomitant]
     Active Substance: PSYLLIUM HUSK

REACTIONS (4)
  - Product odour abnormal [None]
  - Sinusitis [None]
  - Product quality issue [None]
  - Product contamination physical [None]

NARRATIVE: CASE EVENT DATE: 20161001
